FAERS Safety Report 12723463 (Version 2)
Quarter: 2016Q4

REPORT INFORMATION
  Report Type: Spontaneous
  Country: US (occurrence: US)
  Receive Date: 20160908
  Receipt Date: 20161104
  Transmission Date: 20170207
  Serious: No
  Sender: FDA-Public Use
  Company Number: US-PFIZER INC-2016421716

PATIENT
  Age: 25 Year
  Sex: Female

DRUGS (3)
  1. BUTRANS [Suspect]
     Active Substance: BUPRENORPHINE
     Dosage: UNK
  2. BUPRENORPHINE. [Suspect]
     Active Substance: BUPRENORPHINE
     Dosage: UNK
  3. TRAMADOL. [Suspect]
     Active Substance: TRAMADOL
     Dosage: UNK

REACTIONS (1)
  - Drug hypersensitivity [Unknown]
